FAERS Safety Report 6372007-9 (Version None)
Quarter: 2009Q3

REPORT INFORMATION
  Report Type: 
  Country: None (occurrence: None)
  Receive Date: 20090923
  Receipt Date: 20090911
  Transmission Date: 20100115
  Serious: Yes (Hospitalization)
  Sender: FDA-Public Use
  Company Number: US-SANOFI-SYNTHELABO-A03200903206

PATIENT
  Sex: Female
  Weight: 66.2 kg

DRUGS (9)
  1. ELOXATIN [Suspect]
     Indication: COLON CANCER
     Dosage: 150 MG IV OVER TWO HOURS EVERY TWO WEEKIS
     Route: 042
     Dates: start: 20090427, end: 20090427
  2. ELOXATIN [Suspect]
     Dosage: 150 MG IV OVER TWO HOURS EVERY TWO WEEKIS
     Route: 042
     Dates: start: 20090511, end: 20090511
  3. ELOXATIN [Suspect]
     Dosage: 150 MG IV OVER TWO HOURS EVERY TWO WEEKIS
     Route: 042
     Dates: start: 20090526, end: 20090526
  4. BENADRYL [Concomitant]
     Indication: COLON CANCER
     Route: 042
     Dates: start: 20090511, end: 20090511
  5. BENADRYL [Concomitant]
     Route: 042
     Dates: start: 20090526, end: 20090526
  6. DECADRON [Concomitant]
     Indication: DRUG USE FOR UNKNOWN INDICATION
     Dosage: UNK
     Route: 065
  7. ALOXI [Concomitant]
     Indication: DRUG USE FOR UNKNOWN INDICATION
     Dosage: UNK
     Route: 065
  8. FLUOROURACIL [Concomitant]
     Indication: COLON CANCER
     Route: 042
     Dates: start: 20090526, end: 20090526
  9. LEUCOVORIN CALCIUM [Concomitant]
     Indication: COLON CANCER
     Route: 042
     Dates: start: 20090526, end: 20090526

REACTIONS (11)
  - BACK PAIN [None]
  - CHEST PAIN [None]
  - CHILLS [None]
  - DYSPNOEA [None]
  - EJECTION FRACTION DECREASED [None]
  - HEADACHE [None]
  - HYPERSENSITIVITY [None]
  - MITRAL VALVE INCOMPETENCE [None]
  - NAUSEA [None]
  - PRURITUS [None]
  - RASH [None]
